FAERS Safety Report 5567808-0 (Version None)
Quarter: 2007Q4

REPORT INFORMATION
  Report Type: 
  Country: None (occurrence: None)
  Receive Date: 20071220
  Receipt Date: 20071212
  Transmission Date: 20080405
  Serious: Yes (Other)
  Sender: FDA-Public Use
  Company Number: GB-ROXANE LABORATORIES, INC-2007-DE-07346GD

PATIENT
  Age: 49 Year
  Sex: Male

DRUGS (2)
  1. MORPHINE [Suspect]
  2. TRAMADOL HCL [Suspect]
     Route: 048

REACTIONS (4)
  - GENERALISED ERYTHEMA [None]
  - GRAND MAL CONVULSION [None]
  - HYPERHIDROSIS [None]
  - SEROTONIN SYNDROME [None]
